FAERS Safety Report 8123926-4 (Version None)
Quarter: 2012Q1

REPORT INFORMATION
  Report Type: 
  Country: None (occurrence: None)
  Receive Date: 20120209
  Receipt Date: 20120130
  Transmission Date: 20120608
  Serious: Yes (Hospitalization, Other)
  Sender: FDA-Public Use
  Company Number: FR-AMGEN-FRASP2012002594

PATIENT
  Age: 70 Year
  Sex: Male
  Weight: 74 kg

DRUGS (10)
  1. TEMESTA                            /00273201/ [Concomitant]
  2. ENBREL [Suspect]
     Indication: ANKYLOSING SPONDYLITIS
     Dosage: 50 MG, WEEKLY
     Route: 058
     Dates: start: 20100913
  3. LANSOPRAZOLE [Concomitant]
     Dosage: UNK
  4. IRBESARTAN [Concomitant]
  5. TENORDATE [Concomitant]
     Dosage: UNK
  6. PLAVIX [Concomitant]
     Dosage: UNK
  7. MESTINON [Concomitant]
     Dosage: 1 TABLET THREE TIMES DAILY.
  8. SULFASALAZINE [Concomitant]
     Indication: ANKYLOSING SPONDYLITIS
     Dosage: UNK
     Dates: start: 19950101
  9. METFORMIN HCL [Concomitant]
     Dosage: UNK
  10. ATORVASTATIN [Concomitant]
     Dosage: UNK

REACTIONS (4)
  - DIPLOPIA [None]
  - HEADACHE [None]
  - VISION BLURRED [None]
  - OCULAR MYASTHENIA [None]
